FAERS Safety Report 14895843 (Version 2)
Quarter: 2019Q1

REPORT INFORMATION
  Report Type: Report from Study
  Country: KR (occurrence: KR)
  Receive Date: 20180515
  Receipt Date: 20190102
  Transmission Date: 20190417
  Serious: Yes (Hospitalization)
  Sender: FDA-Public Use
  Company Number: KR-ROCHE-2123480

PATIENT
  Age: 35 Year
  Sex: Female
  Weight: 50 kg

DRUGS (1)
  1. TRASTUZUMAB. [Suspect]
     Active Substance: TRASTUZUMAB
     Indication: HER-2 POSITIVE BREAST CANCER
     Dosage: NEXT DOSE: 08/MAY/2018, 29/MAY/2018, 19/JUN/2018, 10/JUL/2018, 30/JUL/2018, 21/AUG/2018, 11/SEP/2018
     Route: 058
     Dates: start: 20180417

REACTIONS (5)
  - Pruritus [Recovered/Resolved]
  - Pharyngitis [Recovered/Resolved]
  - Urticaria [Recovered/Resolved]
  - Corneal erosion [Recovered/Resolved]
  - Headache [Recovered/Resolved]

NARRATIVE: CASE EVENT DATE: 20180509
